FAERS Safety Report 9138324 (Version 1)
Quarter: 2013Q1

REPORT INFORMATION
  Report Type: Spontaneous
  Country: IN (occurrence: None)
  Receive Date: 20130228
  Receipt Date: 20130228
  Transmission Date: 20140127
  Serious: Yes (Death, Hospitalization)
  Sender: FDA-Public Use
  Company Number: NSR_01039_2013

PATIENT
  Age: 12 Year
  Sex: Male

DRUGS (7)
  1. LAMOTRIGINE (LAMOTRIGINE) [Suspect]
     Indication: EPILEPSY
     Dosage: A FEW MONTHS
     Route: 048
  2. SODIUM VALPROATE [Suspect]
     Indication: EPILEPSY
  3. CLONAZEPAM (CLONAZEPAM) (CLONAZEPAM) [Suspect]
     Indication: EPILEPSY
  4. CHLOROQUINE [Suspect]
     Indication: PYREXIA
     Dosage: (DF)
  5. CEFIXIME\CLAVULANATE POTASSIUM [Suspect]
     Indication: PYREXIA
     Dosage: (DF)
  6. ACETAMINOPHEN [Suspect]
     Indication: PYREXIA
     Dosage: (DF)
  7. PRIMAQUINE PHOSPHATE [Suspect]
     Indication: PYREXIA
     Dosage: (DF)
     Route: 048

REACTIONS (10)
  - Toxic epidermal necrolysis [None]
  - Pyrexia [None]
  - Stevens-Johnson syndrome [None]
  - Delirium [None]
  - Disorientation [None]
  - Heart rate increased [None]
  - Respiratory rate increased [None]
  - Respiratory failure [None]
  - Drug clearance decreased [None]
  - Drug interaction [None]
